FAERS Safety Report 16885045 (Version 1)
Quarter: 2019Q4

REPORT INFORMATION
  Report Type: Spontaneous
  Country: US (occurrence: US)
  Receive Date: 20190808
  Receipt Date: 20190808
  Transmission Date: 20200122
  Serious: Yes (Hospitalization)
  Sender: FDA-Public Use
  Company Number: None

PATIENT
  Age: 67 Year
  Sex: Female

DRUGS (20)
  1. ALBUTEROL NEB SOLN [Concomitant]
  2. MOMETASONE TOPE CREAM [Concomitant]
  3. QVAR [Concomitant]
     Active Substance: BECLOMETHASONE DIPROPIONATE
  4. TYLENOL [Concomitant]
     Active Substance: ACETAMINOPHEN
  5. GABAPENTIN. [Concomitant]
     Active Substance: GABAPENTIN
  6. AMBRISENTAN 10MG TABLETS 30/BO: 10MG [Suspect]
     Active Substance: AMBRISENTAN
     Indication: CONNECTIVE TISSUE DISORDER
     Route: 048
     Dates: start: 201511
  7. AZATHIOPRINE. [Concomitant]
     Active Substance: AZATHIOPRINE
  8. MVI [Concomitant]
     Active Substance: VITAMINS
  9. SEPTRA DS [Concomitant]
     Active Substance: SULFAMETHOXAZOLE\TRIMETHOPRIM
  10. METOLAZONE. [Concomitant]
     Active Substance: METOLAZONE
  11. AMLODIPINE [Concomitant]
     Active Substance: AMLODIPINE BESYLATE
  12. SILDENAFIL. [Concomitant]
     Active Substance: SILDENAFIL
  13. PREDNISONE. [Concomitant]
     Active Substance: PREDNISONE
  14. POTASSIUM CHLORIDE. [Concomitant]
     Active Substance: POTASSIUM CHLORIDE
  15. VOLTAREN TOP GEL [Concomitant]
  16. TORSEMIDE. [Concomitant]
     Active Substance: TORSEMIDE
  17. ALBUTEROL HFA [Concomitant]
     Active Substance: ALBUTEROL SULFATE
  18. ESCITALOPRAM [Concomitant]
     Active Substance: ESCITALOPRAM OXALATE
  19. AMBRISENTAN 10MG TABLETS 30/BO: 10MG [Suspect]
     Active Substance: AMBRISENTAN
     Indication: PULMONARY ARTERIAL HYPERTENSION
     Route: 048
     Dates: start: 201511
  20. FLONASE [Concomitant]
     Active Substance: FLUTICASONE PROPIONATE

REACTIONS (5)
  - Respiratory failure [None]
  - Acute respiratory failure [None]
  - Left ventricular failure [None]
  - Diastolic dysfunction [None]
  - Fluid overload [None]

NARRATIVE: CASE EVENT DATE: 20190724
